FAERS Safety Report 24561545 (Version 1)
Quarter: 2024Q4

REPORT INFORMATION
  Report Type: Spontaneous
  Country: GB (occurrence: GB)
  Receive Date: 20241029
  Receipt Date: 20241029
  Transmission Date: 20250115
  Serious: Yes (Other)
  Sender: B BRAUN
  Company Number: GB-B.Braun Medical Inc.-2164039

PATIENT
  Age: 74 Year
  Sex: Female
  Weight: 56 kg

DRUGS (2)
  1. METRONIDAZOLE [Suspect]
     Active Substance: METRONIDAZOLE
     Indication: Alveolar osteitis
     Dates: start: 20240613
  2. NYSTATIN [Suspect]
     Active Substance: NYSTATIN

REACTIONS (3)
  - Photosensitivity reaction [Unknown]
  - Off label use [Unknown]
  - Erythema [Unknown]
